FAERS Safety Report 6432537-8 (Version None)
Quarter: 2009Q4

REPORT INFORMATION
  Report Type: 
  Country: None (occurrence: None)
  Receive Date: 20091105
  Receipt Date: 20090706
  Transmission Date: 20100525
  Serious: Yes (Hospitalization)
  Sender: FDA-Public Use
  Company Number: 2009AP002632

PATIENT
  Age: 50 Year
  Sex: Female

DRUGS (17)
  1. AMLODIPINE BESYLATE [Suspect]
     Indication: HYPERTENSION
     Dosage: 10 MG; QD; GT
  2. NICARDIPINE HYDROCHLORIDE [Concomitant]
  3. FOSPHENYTOIN [Concomitant]
  4. FENTANYL-100 [Concomitant]
  5. PROPOFOL [Concomitant]
  6. FAMOTIDINE [Concomitant]
  7. VANCOMYCIN [Concomitant]
  8. LOSARTAN POTASSIUM [Concomitant]
  9. CLONIDINE [Concomitant]
  10. VERAPAMIL [Concomitant]
  11. VALSARTAN [Concomitant]
  12. METOPROLOL [Concomitant]
  13. RANITIDINE [Concomitant]
  14. CINACALCET HYDROCHLORIDE [Concomitant]
  15. LABETALOL HCL [Concomitant]
  16. ATROPINE [Concomitant]
  17. EPINEPHRINE [Concomitant]

REACTIONS (2)
  - ANGIOEDEMA [None]
  - PYREXIA [None]
